FAERS Safety Report 4387769-X (Version None)
Quarter: 2004Q2

REPORT INFORMATION
  Report Type: 
  Country: None (occurrence: None)
  Receive Date: 20040625
  Receipt Date: 20040609
  Transmission Date: 20050107
  Serious: No
  Sender: FDA-Public Use
  Company Number: 2004AP03129

PATIENT
  Age: 29 Year
  Sex: Female

DRUGS (4)
  1. CARBOCAIN [Suspect]
     Indication: BACK PAIN
  2. CARBOCAIN [Suspect]
     Indication: LOCAL ANAESTHESIA
  3. DEXAMETHASONE [Suspect]
     Indication: BACK PAIN
  4. DEXAMETHASONE [Suspect]
     Indication: LOCAL ANAESTHESIA

REACTIONS (8)
  - ANAESTHETIC COMPLICATION [None]
  - ANAPHYLACTOID REACTION [None]
  - BLOOD PRESSURE DECREASED [None]
  - CARDIOMYOPATHY [None]
  - EYE REDNESS [None]
  - EYELIDS PRURITUS [None]
  - GASTROINTESTINAL DISORDER [None]
  - RHINORRHOEA [None]
